FAERS Safety Report 17150245 (Version 2)
Quarter: 2022Q2

REPORT INFORMATION
  Report Type: Spontaneous
  Country: US (occurrence: US)
  Receive Date: 20191213
  Receipt Date: 20220430
  Transmission Date: 20220721
  Serious: No
  Sender: FDA-Public Use
  Company Number: US-TEVA-2019-US-1153601

PATIENT
  Sex: Male

DRUGS (2)
  1. METRONIDAZOLE [Suspect]
     Active Substance: METRONIDAZOLE
     Indication: Crohn^s disease
     Dosage: 3 DOSAGE FORMS DAILY;
     Route: 065
  2. AMOXICILLIN AND CLAVULANATE POTASSIUM [Suspect]
     Active Substance: AMOXICILLIN\CLAVULANATE POTASSIUM
     Indication: Crohn^s disease
     Dosage: 2 DOSAGE FORMS DAILY;
     Route: 065

REACTIONS (3)
  - Adverse event [Unknown]
  - Product taste abnormal [Unknown]
  - Product odour abnormal [Unknown]
